FAERS Safety Report 10350657 (Version 1)
Quarter: 2014Q3

REPORT INFORMATION
  Report Type: Spontaneous
  Country: US (occurrence: US)
  Receive Date: 20140730
  Receipt Date: 20140730
  Transmission Date: 20150326
  Serious: No
  Sender: FDA-Public Use
  Company Number: US-PFIZER INC-2014208195

PATIENT
  Sex: Male

DRUGS (1)
  1. CELEBREX [Suspect]
     Active Substance: CELECOXIB
     Indication: BACK DISORDER
     Dosage: 50 MG, UNK

REACTIONS (3)
  - Therapeutic response changed [Unknown]
  - Pre-existing condition improved [Unknown]
  - Off label use [Unknown]
